FAERS Safety Report 16870293 (Version 2)
Quarter: 2020Q1

REPORT INFORMATION
  Report Type: Spontaneous
  Country: US (occurrence: US)
  Receive Date: 20190930
  Receipt Date: 20200226
  Transmission Date: 20200409
  Serious: Yes (Hospitalization, Disabling, Other)
  Sender: FDA-Public Use
  Company Number: US-009507513-1909USA010796

PATIENT
  Sex: Male
  Weight: 126.98 kg

DRUGS (1)
  1. JANUMET [Suspect]
     Active Substance: METFORMIN HYDROCHLORIDE\SITAGLIPTIN PHOSPHATE
     Dosage: 1 TABLET (REPORTED AS 50-1000 MILLIGRAM), TWICE DAILY
     Route: 048
     Dates: start: 20160926, end: 201801

REACTIONS (31)
  - Loss of consciousness [Unknown]
  - Degenerative bone disease [Unknown]
  - Renal cyst [Unknown]
  - Vomiting [Not Recovered/Not Resolved]
  - Syncope [Unknown]
  - Arteriosclerosis coronary artery [Unknown]
  - Testicular mass [Unknown]
  - Granulomatous liver disease [Unknown]
  - Hepatic cancer metastatic [Recovering/Resolving]
  - Nausea [Not Recovered/Not Resolved]
  - Hyperlipidaemia [Not Recovered/Not Resolved]
  - Obesity [Unknown]
  - Insomnia [Unknown]
  - Neutropenia [Recovered/Resolved]
  - Aortic arteriosclerosis [Unknown]
  - Testicular pain [Unknown]
  - Atelectasis [Unknown]
  - Bone cyst [Unknown]
  - Inguinal hernia [Unknown]
  - Pulmonary mass [Unknown]
  - Constipation [Unknown]
  - Diabetes mellitus inadequate control [Recovered/Resolved]
  - Thrombocytopenia [Unknown]
  - Pancreatic carcinoma stage III [Not Recovered/Not Resolved]
  - Splenectomy [Unknown]
  - Neuropathy peripheral [Not Recovered/Not Resolved]
  - Diarrhoea [Unknown]
  - Arteriosclerosis [Unknown]
  - Benign prostatic hyperplasia [Unknown]
  - Lung opacity [Unknown]
  - Gastrooesophageal reflux disease [Unknown]

NARRATIVE: CASE EVENT DATE: 2017
